FAERS Safety Report 8112977-1 (Version None)
Quarter: 2012Q1

REPORT INFORMATION
  Report Type: 
  Country: None (occurrence: None)
  Receive Date: 20120203
  Receipt Date: 20120123
  Transmission Date: 20120608
  Serious: Yes (Hospitalization)
  Sender: FDA-Public Use
  Company Number: IE-ELI_LILLY_AND_COMPANY-IE201201006431

PATIENT
  Sex: Female

DRUGS (11)
  1. CAPTOR [Concomitant]
  2. PRILOSEC [Concomitant]
  3. LACTULOSE [Concomitant]
  4. NALOXONE [Concomitant]
  5. DULCOLAX [Concomitant]
  6. MOVIPREP [Concomitant]
  7. FORTEO [Suspect]
     Indication: OSTEOPOROSIS
     Dosage: 20 UG, UNK
     Dates: start: 20120101
  8. ACETAMINOPHEN [Concomitant]
  9. BENDROFLUMETHIAZIDE [Concomitant]
  10. MOTILIUM [Concomitant]
  11. PREDNISOLONE [Concomitant]

REACTIONS (1)
  - CHILLS [None]
